FAERS Safety Report 7807835-3 (Version None)
Quarter: 2011Q4

REPORT INFORMATION
  Report Type: 
  Country: None (occurrence: None)
  Receive Date: 20111011
  Receipt Date: 20111007
  Transmission Date: 20120403
  Serious: Yes (Hospitalization)
  Sender: FDA-Public Use
  Company Number: US-CEPHALON-2011004886

PATIENT
  Age: 47 Year
  Sex: Female
  Weight: 80 kg

DRUGS (11)
  1. CARBOPLATIN [Suspect]
     Indication: HODGKIN'S DISEASE
     Route: 042
     Dates: start: 20110831
  2. OXYCODONE HCL [Concomitant]
     Dates: start: 20100101
  3. AMBIEN [Concomitant]
     Dates: start: 19970101
  4. COMPAZINE [Concomitant]
     Dates: start: 20110901
  5. PREDNISONE [Concomitant]
     Dates: start: 20110806
  6. TIZANIDINE HCL [Concomitant]
     Dates: start: 20090101
  7. ALPRAZOLAM [Concomitant]
     Dates: start: 20080101
  8. ETOPOSIDE [Suspect]
     Indication: HODGKIN'S DISEASE
     Route: 042
     Dates: start: 20110831
  9. FENTANYL [Concomitant]
     Dates: start: 20080101
  10. LYRICA [Concomitant]
     Dates: start: 20080101
  11. TREANDA [Suspect]
     Indication: HODGKIN'S DISEASE
     Route: 041
     Dates: start: 20110831

REACTIONS (1)
  - MENINGITIS ASEPTIC [None]
